FAERS Safety Report 5999069-2 (Version None)
Quarter: 2008Q4

REPORT INFORMATION
  Report Type: 
  Country: None (occurrence: None)
  Receive Date: 20081215
  Receipt Date: 20081204
  Transmission Date: 20090506
  Serious: Yes (Disabling, Other)
  Sender: FDA-Public Use
  Company Number: GB-RANBAXY-2008RR-19773

PATIENT
  Age: 85 Year
  Sex: Male

DRUGS (10)
  1. SIMVASTATIN [Suspect]
     Dosage: 40 MG, UNK
     Route: 048
     Dates: end: 20081101
  2. VERAPAMIL [Suspect]
     Indication: ATRIAL FIBRILLATION
     Dosage: 40 MG, TID
     Route: 048
     Dates: start: 20081001
  3. ASPIRIN [Concomitant]
     Dosage: 75 MG, UNK
     Route: 048
  4. BRIMONIDINE [Concomitant]
  5. ACETAMINOPHEN W/ CODEINE [Concomitant]
     Dosage: 2 DF, Q3H
     Route: 048
  6. FUROSEMIDE [Concomitant]
     Dosage: 40 MG, UNK
     Route: 048
  7. LISINOPRIL [Concomitant]
     Dosage: 20 MG, UNK
     Route: 048
  8. QVAR 40 [Concomitant]
     Indication: CHRONIC OBSTRUCTIVE PULMONARY DISEASE
     Dosage: 1 DF, BID
     Route: 055
  9. ALBUTEROL SULFATE [Concomitant]
     Indication: CHRONIC OBSTRUCTIVE PULMONARY DISEASE
     Dosage: 2 DF, PRN
     Route: 055
  10. SALMETEROL [Concomitant]
     Indication: CHRONIC OBSTRUCTIVE PULMONARY DISEASE
     Dosage: 2 DF, BID
     Route: 055

REACTIONS (3)
  - BLOOD CREATINE PHOSPHOKINASE INCREASED [None]
  - HYPOKINESIA [None]
  - MYOSITIS [None]
